FAERS Safety Report 9260002 (Version 1)
Quarter: 2013Q2

REPORT INFORMATION
  Report Type: Spontaneous
  Country: US (occurrence: US)
  Receive Date: 20130429
  Receipt Date: 20130429
  Transmission Date: 20140414
  Serious: Yes (Death)
  Sender: FDA-Public Use
  Company Number: US-JNJFOC-20130415306

PATIENT
  Sex: 0

DRUGS (9)
  1. DOXORUBICIN [Suspect]
     Indication: PRIMARY MEDIASTINAL LARGE B-CELL LYMPHOMA
     Route: 042
  2. DOXORUBICIN [Suspect]
     Indication: DIFFUSE LARGE B-CELL LYMPHOMA
     Route: 042
  3. DOXORUBICIN [Suspect]
     Indication: HODGKIN^S DISEASE
     Route: 042
  4. ETOPOSIDE [Suspect]
     Indication: HODGKIN^S DISEASE
     Route: 065
  5. PREDNISONE [Suspect]
     Indication: HODGKIN^S DISEASE
     Route: 065
  6. VINCRISTINE [Suspect]
     Indication: HODGKIN^S DISEASE
     Route: 065
  7. CYCLOPHOSPHAMIDE [Suspect]
     Indication: HODGKIN^S DISEASE
     Route: 065
  8. RITUXIMAB [Suspect]
     Indication: HODGKIN^S DISEASE
     Route: 065
  9. ALEMTUZUMAB [Suspect]
     Indication: HODGKIN^S DISEASE
     Dosage: ON DAY 1
     Route: 042

REACTIONS (1)
  - Sepsis [Fatal]
